FAERS Safety Report 4269413-5 (Version None)
Quarter: 2004Q1

REPORT INFORMATION
  Report Type: 
  Country: None (occurrence: None)
  Receive Date: 20040112
  Receipt Date: 20040112
  Transmission Date: 20041129
  Serious: Yes (Hospitalization)
  Sender: FDA-Public Use
  Company Number: None

PATIENT
  Age: 55 Year
  Sex: Male
  Weight: 92 kg

DRUGS (13)
  1. WARFARIN SODIUM [Suspect]
     Indication: DEEP VEIN THROMBOSIS
     Dosage: 2.5 MG QD
  2. HAART [Concomitant]
  3. AZITHROMYCIN [Concomitant]
  4. FLUCONAZOLE [Concomitant]
  5. METOPROLOL [Concomitant]
  6. BACTRIM [Concomitant]
  7. LAMIVUDINE [Concomitant]
  8. NELFINAVIR [Concomitant]
  9. STAVUDINE [Concomitant]
  10. PREDNISONE [Concomitant]
  11. MOTRIN [Concomitant]
  12. LORATADINE [Concomitant]
  13. RIBOFLOVIN [Concomitant]

REACTIONS (2)
  - HAEMORRHAGE [None]
  - INTERNATIONAL NORMALISED RATIO INCREASED [None]
